FAERS Safety Report 25764805 (Version 2)
Quarter: 2025Q4

REPORT INFORMATION
  Report Type: Report from Study
  Country: BR (occurrence: BR)
  Receive Date: 20250905
  Receipt Date: 20251013
  Transmission Date: 20260117
  Serious: Yes (Hospitalization)
  Sender: SANOFI AVENTIS
  Company Number: BR-SANOFI-02624510

PATIENT
  Age: 44 Year
  Sex: Female
  Weight: 81 kg

DRUGS (7)
  1. ALEMTUZUMAB [Suspect]
     Active Substance: ALEMTUZUMAB
     Indication: Multiple sclerosis
     Dosage: 5 DF, QCY
     Route: 042
     Dates: start: 20250818, end: 20250822
  2. HYDROCORTISONE [Suspect]
     Active Substance: HYDROCORTISONE
     Dosage: UNK
  3. METHYLPREDNISOLONE [Concomitant]
     Active Substance: METHYLPREDNISOLONE
     Dosage: 2 DF
     Route: 042
  4. DIPHENHYDRAMINE [Concomitant]
     Active Substance: DIPHENHYDRAMINE
     Dosage: 1 DF
     Route: 042
  5. ONDANSETRON HYDROCHLORIDE [Concomitant]
     Active Substance: ONDANSETRON HYDROCHLORIDE
     Dosage: 1 DF
     Route: 042
  6. SERTRALINE [Concomitant]
     Active Substance: SERTRALINE HYDROCHLORIDE
     Indication: Sedative therapy
     Dosage: UNK
  7. BACTRIM [Concomitant]
     Active Substance: SULFAMETHOXAZOLE\TRIMETHOPRIM
     Dosage: UNK

REACTIONS (25)
  - Pollakiuria [Recovered/Resolved]
  - Constipation [Recovered/Resolved]
  - Sensory loss [Unknown]
  - Irritability [Unknown]
  - Anxiety [Unknown]
  - Feeling abnormal [Unknown]
  - Drooling [Unknown]
  - Somnolence [Unknown]
  - Hypertension [Recovered/Resolved]
  - Headache [Unknown]
  - Abdominal pain lower [Recovered/Resolved]
  - Urticaria [Recovered/Resolved]
  - Pruritus [Recovered/Resolved]
  - Contusion [Recovered/Resolved]
  - Skin discolouration [Recovered/Resolved]
  - Decreased immune responsiveness [Unknown]
  - Drug hypersensitivity [Unknown]
  - Erythema [Unknown]
  - Skin burning sensation [Unknown]
  - Poor venous access [Unknown]
  - Off label use [Unknown]
  - Urinary tract infection [Unknown]
  - Condition aggravated [Unknown]
  - Urinary incontinence [Unknown]
  - Micturition urgency [Unknown]

NARRATIVE: CASE EVENT DATE: 20250430
